FAERS Safety Report 6965931-7 (Version None)
Quarter: 2010Q3

REPORT INFORMATION
  Report Type: 
  Country: None (occurrence: None)
  Receive Date: 20100903
  Receipt Date: 20100903
  Transmission Date: 20110219
  Serious: Yes (Other)
  Sender: FDA-Public Use
  Company Number: FR-MPIJNJ-2010-02579

PATIENT

DRUGS (7)
  1. VELCADE [Suspect]
     Indication: MULTIPLE MYELOMA
     Dosage: 1.3 MG/M2, UNK
     Route: 042
     Dates: start: 20090929
  2. VELCADE [Suspect]
     Dosage: 1 MG/M2, UNK
     Route: 042
     Dates: start: 20091020, end: 20091117
  3. VELCADE [Suspect]
     Dosage: UNK
     Route: 042
     Dates: start: 20100414
  4. DEXAMETHASONE [Concomitant]
     Dosage: 40 MG, UNK
     Route: 048
     Dates: start: 20090929
  5. THALIDOMIDE [Concomitant]
     Dosage: 50 MG, UNK
     Route: 048
     Dates: start: 20090929
  6. ZELITREX                           /01269701/ [Concomitant]
     Dosage: 500 MG, UNK
  7. ASPEGIC 325 [Concomitant]
     Dosage: 1 DF, UNK

REACTIONS (2)
  - BLEPHARITIS [None]
  - HORDEOLUM [None]
